FAERS Safety Report 24434753 (Version 1)
Quarter: 2024Q4

REPORT INFORMATION
  Report Type: Spontaneous
  Country: FR (occurrence: FR)
  Receive Date: 20241014
  Receipt Date: 20241014
  Transmission Date: 20250114
  Serious: Yes (Hospitalization)
  Sender: MYLAN
  Company Number: None

PATIENT
  Age: 58 Year
  Sex: Male
  Weight: 98 kg

DRUGS (2)
  1. METFORMIN [Suspect]
     Active Substance: METFORMIN HYDROCHLORIDE
     Indication: Product used for unknown indication
     Dosage: NP
     Route: 048
     Dates: start: 20240824, end: 20240824
  2. TERALITHE [Suspect]
     Active Substance: LITHIUM CARBONATE
     Indication: Product used for unknown indication
     Dosage: NP
     Route: 048
     Dates: start: 20240824, end: 20240824

REACTIONS (7)
  - Agitation [Recovered/Resolved]
  - Tremor [Recovered/Resolved]
  - Aphasia [Recovered/Resolved]
  - Poisoning deliberate [Recovered/Resolved]
  - Acute kidney injury [Recovered/Resolved]
  - Lactic acidosis [Recovered/Resolved]
  - Intentional overdose [Recovered/Resolved]

NARRATIVE: CASE EVENT DATE: 20240824
